FAERS Safety Report 8173746-X (Version None)
Quarter: 2012Q1

REPORT INFORMATION
  Report Type: 
  Country: None (occurrence: None)
  Receive Date: 20120229
  Receipt Date: 20120119
  Transmission Date: 20120608
  Serious: No
  Sender: FDA-Public Use
  Company Number: US-ABBOTT-12P-163-0895969-00

PATIENT
  Sex: Female
  Weight: 72.64 kg

DRUGS (11)
  1. DEPAKENE [Suspect]
     Dosage: 500MG IN AM, 250MG IN PM
     Dates: start: 20111201
  2. DEPAKENE [Suspect]
     Indication: BIPOLAR DISORDER
     Dates: start: 20110801, end: 20111201
  3. PREVADENT TOOTH PAST [Concomitant]
     Indication: PRODUCT USED FOR UNKNOWN INDICATION
  4. GABAPENTIN [Concomitant]
     Indication: BIPOLAR DISORDER
  5. LOVASTATIN [Concomitant]
     Indication: BLOOD CHOLESTEROL INCREASED
  6. ACETAMINOPHEN [Concomitant]
     Indication: PRODUCT USED FOR UNKNOWN INDICATION
  7. VITAMIN B-12 [Concomitant]
     Indication: PRODUCT USED FOR UNKNOWN INDICATION
  8. SEROQUEL [Concomitant]
     Indication: BIPOLAR DISORDER
  9. AMLODIPINE [Concomitant]
     Indication: HYPERTENSION
  10. FLUTICASONE PROPIONATE [Concomitant]
     Indication: SINUS DISORDER
  11. PARNATE [Concomitant]
     Indication: BIPOLAR DISORDER

REACTIONS (3)
  - ALOPECIA [None]
  - NAIL DISORDER [None]
  - ONYCHOCLASIS [None]
